FAERS Safety Report 14915474 (Version 2)
Quarter: 2018Q2

REPORT INFORMATION
  Report Type: Spontaneous
  Country: FR (occurrence: FR)
  Receive Date: 20180518
  Receipt Date: 20180620
  Transmission Date: 20180711
  Serious: Yes (Other)
  Sender: FDA-Public Use
  Company Number: FR-MYLANLABS-2018M1032271

PATIENT
  Age: 70 Year
  Sex: Female

DRUGS (6)
  1. TECHNETIUM (99M TC) DMSA [Interacting]
     Active Substance: TECHNETIUM TC-99M SUCCIMER
     Indication: SCAN THYROID GLAND
     Dosage: 1 DF, UNK
     Route: 042
  2. SOTALOL MYLAN 160 MG, COMPRIM? S?CABLE [Suspect]
     Active Substance: SOTALOL
     Indication: JOINT HYPEREXTENSION
     Dosage: 1 DF, QD
     Route: 048
  3. SIMVASTATIN. [Interacting]
     Active Substance: SIMVASTATIN
     Indication: DIABETIC DYSLIPIDAEMIA
     Dosage: UNK
     Route: 048
  4. KARDEGIC [Interacting]
     Active Substance: ASPIRIN DL-LYSINE
     Indication: PROPHYLAXIS
     Dosage: 1 DF, QD
     Route: 048
  5. OMEPRAZOLE. [Interacting]
     Active Substance: OMEPRAZOLE
     Indication: PRODUCT USED FOR UNKNOWN INDICATION
     Dosage: 1 DF, QD
     Route: 048
  6. METFORMINE                         /00082701/ [Interacting]
     Active Substance: METFORMIN HYDROCHLORIDE
     Indication: DIABETES MELLITUS
     Dosage: 3 DF, QD
     Route: 048

REACTIONS (4)
  - Iodine uptake decreased [Not Recovered/Not Resolved]
  - Thyroid gland scan abnormal [Not Recovered/Not Resolved]
  - Product distribution issue [Not Recovered/Not Resolved]
  - Drug interaction [Not Recovered/Not Resolved]

NARRATIVE: CASE EVENT DATE: 2017
